FAERS Safety Report 7672959-0 (Version None)
Quarter: 2011Q3

REPORT INFORMATION
  Report Type: 
  Country: None (occurrence: None)
  Receive Date: 20110809
  Receipt Date: 20110803
  Transmission Date: 20111222
  Serious: Yes (Death)
  Sender: FDA-Public Use
  Company Number: US-GILEAD-2011-0042362

PATIENT
  Age: 78 Year
  Sex: Male

DRUGS (3)
  1. LETAIRIS [Suspect]
     Indication: LUNG DISORDER
  2. LETAIRIS [Suspect]
     Indication: HYPOXIA
  3. LETAIRIS [Suspect]
     Indication: PULMONARY HYPERTENSION
     Route: 048
     Dates: start: 20110711, end: 20110726

REACTIONS (1)
  - DEATH [None]
